FAERS Safety Report 10268902 (Version 1)
Quarter: 2014Q2

REPORT INFORMATION
  Report Type: Spontaneous
  Country: US (occurrence: US)
  Receive Date: 20140630
  Receipt Date: 20140630
  Transmission Date: 20141212
  Serious: Yes (Other)
  Sender: FDA-Public Use
  Company Number: CHPA2014US008752

PATIENT
  Age: 47 Year
  Sex: Male

DRUGS (4)
  1. RITEAID STEP 2 14MG [Suspect]
     Indication: SMOKING CESSATION THERAPY
     Dosage: 1 DF, QD
     Route: 062
     Dates: start: 20140522, end: 20140622
  2. RITEAID STEP 2 14MG [Suspect]
     Indication: INCORRECT DOSE ADMINISTERED
  3. RITEAID STEP 2 14MG [Suspect]
     Indication: OFF LABEL USE
  4. RITEAID STEP 1 21MG [Suspect]
     Indication: SMOKING CESSATION THERAPY
     Dosage: 1 DF, QD
     Route: 062
     Dates: start: 20140624

REACTIONS (6)
  - Arterial occlusive disease [Not Recovered/Not Resolved]
  - Cerebrovascular accident [Recovered/Resolved]
  - Carpal tunnel syndrome [Not Recovered/Not Resolved]
  - Hypoaesthesia [Recovering/Resolving]
  - Nicotine dependence [Unknown]
  - Incorrect drug administration duration [Unknown]
